FAERS Safety Report 23627957 (Version 1)
Quarter: 2024Q1

REPORT INFORMATION
  Report Type: Spontaneous
  Country: US (occurrence: US)
  Receive Date: 20240313
  Receipt Date: 20240313
  Transmission Date: 20240410
  Serious: Yes (Hospitalization)
  Sender: FDA-Public Use
  Company Number: US-DRL-USA-LIT/USA/24/0004206

PATIENT
  Age: 37 Year
  Sex: Male
  Weight: 73.3 kg

DRUGS (10)
  1. METOPROLOL [Suspect]
     Active Substance: METOPROLOL
     Indication: Hypertension
  2. DIVALPROEX SODIUM [Suspect]
     Active Substance: DIVALPROEX SODIUM
     Indication: Product used for unknown indication
  3. LIDOCAINE [Suspect]
     Active Substance: LIDOCAINE
     Indication: Local anaesthesia
     Dosage: TOTAL OF 70 ML
     Route: 058
  4. BUPROPION [Suspect]
     Active Substance: BUPROPION
     Indication: Product used for unknown indication
  5. FENTANYL [Concomitant]
     Active Substance: FENTANYL\FENTANYL CITRATE
     Indication: Local anaesthesia
  6. MIDAZOLAM [Concomitant]
     Active Substance: MIDAZOLAM
     Indication: Local anaesthesia
     Route: 042
  7. FAMOTIDINE [Concomitant]
     Active Substance: FAMOTIDINE
     Indication: Gastrooesophageal reflux disease
  8. RIZATRIPTAN BENZOATE [Concomitant]
     Active Substance: RIZATRIPTAN BENZOATE
     Indication: Headache
     Dosage: 10-MG TAB (1 TAB-LET PRN  FOR HEADACHE)
  9. GABAPENTIN [Concomitant]
     Active Substance: GABAPENTIN
     Indication: Neuralgia
     Dosage: 300 MG ONE CAPSULE TWICE DAILY
  10. CHOLECALCIFEROL [Concomitant]
     Active Substance: CHOLECALCIFEROL
     Indication: Product used for unknown indication
     Dosage: 50  ?G DAILY

REACTIONS (6)
  - Local anaesthetic systemic toxicity [Recovering/Resolving]
  - Drug interaction [Unknown]
  - Sinus tachycardia [Unknown]
  - Hemiparesis [Unknown]
  - Neurotoxicity [Unknown]
  - Hemihypoaesthesia [Unknown]
